FAERS Safety Report 9280968 (Version 1)
Quarter: 2013Q2

REPORT INFORMATION
  Report Type: Report from Study
  Country: GB (occurrence: GB)
  Receive Date: 20130509
  Receipt Date: 20130509
  Transmission Date: 20140414
  Serious: Yes (Hospitalization, Other)
  Sender: FDA-Public Use
  Company Number: GB-ROCHE-1222985

PATIENT
  Age: 62 Year
  Sex: Female
  Weight: 61 kg

DRUGS (2)
  1. AVASTIN [Suspect]
     Indication: OVARIAN CANCER
     Route: 042
  2. AVASTIN [Suspect]
     Route: 042
     Dates: start: 20121015, end: 20130405

REACTIONS (2)
  - Cerebrovascular accident [Not Recovered/Not Resolved]
  - Disease progression [Unknown]
